FAERS Safety Report 20643935 (Version 1)
Quarter: 2022Q1

REPORT INFORMATION
  Report Type: Spontaneous
  Country: US (occurrence: US)
  Receive Date: 20220328
  Receipt Date: 20220328
  Transmission Date: 20220423
  Serious: Yes (Other)
  Sender: FDA-Public Use
  Company Number: US-ABBVIE-22K-163-4329646-00

PATIENT
  Sex: Male

DRUGS (10)
  1. LUPRON DEPOT [Suspect]
     Active Substance: LEUPROLIDE ACETATE
     Indication: Product used for unknown indication
     Route: 030
     Dates: start: 200508, end: 202008
  2. CASODEX [Concomitant]
     Active Substance: BICALUTAMIDE
     Indication: Product used for unknown indication
     Dates: start: 200508, end: 201807
  3. CASODEX [Concomitant]
     Active Substance: BICALUTAMIDE
     Dates: start: 201809
  4. PROSCAR [Concomitant]
     Active Substance: FINASTERIDE
     Indication: Product used for unknown indication
     Dates: start: 201403, end: 201807
  5. PROSCAR [Concomitant]
     Active Substance: FINASTERIDE
     Dates: start: 201809
  6. XTANDI [Concomitant]
     Active Substance: ENZALUTAMIDE
     Indication: Product used for unknown indication
     Dates: start: 201903, end: 201907
  7. ZYTIGA [Concomitant]
     Active Substance: ABIRATERONE ACETATE
     Indication: Product used for unknown indication
     Dates: start: 202002, end: 202003
  8. NUBEQA [Concomitant]
     Active Substance: DAROLUTAMIDE
     Indication: Product used for unknown indication
     Dates: start: 202005
  9. TAXOTERE [Concomitant]
     Active Substance: DOCETAXEL
     Indication: Product used for unknown indication
  10. FIRMAGON [Concomitant]
     Active Substance: DEGARELIX ACETATE
     Indication: Product used for unknown indication
     Dates: start: 202103

REACTIONS (7)
  - Bladder disorder [Unknown]
  - Lymphadenopathy [Unknown]
  - Retinitis pigmentosa [Unknown]
  - Prostate cancer metastatic [Unknown]
  - Gene mutation [Unknown]
  - Bone lesion [Unknown]
  - Metastases to bone [Unknown]
